FAERS Safety Report 7281588-2 (Version None)
Quarter: 2011Q1

REPORT INFORMATION
  Report Type: 
  Country: None (occurrence: None)
  Receive Date: 20110208
  Receipt Date: 20110128
  Transmission Date: 20110831
  Serious: Yes (Hospitalization, Other)
  Sender: FDA-Public Use
  Company Number: PHHY2009US66753

PATIENT
  Sex: Female

DRUGS (3)
  1. EXJADE [Suspect]
     Dosage: UNK
     Dates: start: 20100601
  2. EXJADE [Suspect]
     Dosage: 250 MG
     Route: 048
  3. EXJADE [Suspect]
     Dosage: UNK
     Dates: start: 20101006

REACTIONS (4)
  - ARTHRALGIA [None]
  - INFLUENZA [None]
  - MUSCULOSKELETAL PAIN [None]
  - OEDEMA PERIPHERAL [None]
